FAERS Safety Report 9437177 (Version 20)
Quarter: 2018Q1

REPORT INFORMATION
  Report Type: Report from Study
  Country: CA (occurrence: CA)
  Receive Date: 20130802
  Receipt Date: 20180323
  Transmission Date: 20180509
  Serious: Yes (Hospitalization, Other)
  Sender: FDA-Public Use
  Company Number: PHHY2013CA003762

PATIENT
  Age: 47 Year
  Sex: Female

DRUGS (5)
  1. ATENOLOL. [Concomitant]
     Active Substance: ATENOLOL
     Indication: PRODUCT USED FOR UNKNOWN INDICATION
     Dosage: 50 MG, UNK
     Route: 065
  2. SANDOSTATIN LAR DEPOT [Suspect]
     Active Substance: OCTREOTIDE ACETATE
     Indication: NEUROENDOCRINE CARCINOMA METASTATIC
     Dosage: 30 MG, QMO (EVERY 4 WEEKS)
     Route: 030
     Dates: start: 20121101
  3. TYLENOL [Concomitant]
     Active Substance: ACETAMINOPHEN
     Indication: PAIN
     Dosage: UNK
     Route: 065
  4. SANDOSTATIN LAR DEPOT [Suspect]
     Active Substance: OCTREOTIDE ACETATE
     Dosage: 30 MG, QMO (EVERY 4 WEEKS)
     Route: 030
     Dates: start: 20170328
  5. SANDOSTATIN [Suspect]
     Active Substance: OCTREOTIDE ACETATE
     Indication: NEUROENDOCRINE CARCINOMA METASTATIC
     Dosage: TEST DOSE
     Route: 058
     Dates: start: 20120927, end: 20120927

REACTIONS (48)
  - Malignant neoplasm progression [Unknown]
  - Hepatic steatosis [Unknown]
  - Injection site haemorrhage [Unknown]
  - Influenza like illness [Unknown]
  - Insomnia [Unknown]
  - Chest pain [Unknown]
  - Pain in extremity [Unknown]
  - Nervousness [Unknown]
  - Hypersensitivity [Unknown]
  - Stress [Unknown]
  - Headache [Unknown]
  - Drug ineffective [Unknown]
  - Pain [Recovering/Resolving]
  - Fear [Unknown]
  - Cough [Unknown]
  - Productive cough [Unknown]
  - Sputum discoloured [Unknown]
  - Abdominal pain [Unknown]
  - Asthenia [Unknown]
  - Influenza [Unknown]
  - Malaise [Unknown]
  - Hepatic pain [Unknown]
  - Depression [Unknown]
  - Hypokinesia [Unknown]
  - Back pain [Unknown]
  - Needle issue [Unknown]
  - Chills [Unknown]
  - Weight decreased [Unknown]
  - Feeling abnormal [Unknown]
  - Tenderness [Unknown]
  - Vomiting [Unknown]
  - Hyperhidrosis [Unknown]
  - Hypertension [Unknown]
  - Abdominal pain upper [Unknown]
  - Frustration tolerance decreased [Unknown]
  - Musculoskeletal discomfort [Unknown]
  - Dry skin [Unknown]
  - Fatigue [Unknown]
  - Breast enlargement [Unknown]
  - Injection site pain [Not Recovered/Not Resolved]
  - Diarrhoea [Recovering/Resolving]
  - Metastases to liver [Unknown]
  - Hepatic lesion [Unknown]
  - Anger [Unknown]
  - Nasopharyngitis [Unknown]
  - Chest discomfort [Not Recovered/Not Resolved]
  - Injection site mass [Unknown]
  - Muscle spasms [Unknown]

NARRATIVE: CASE EVENT DATE: 201212
